FAERS Safety Report 9796346 (Version 2)
Quarter: 2014Q1

REPORT INFORMATION
  Report Type: Spontaneous
  Country: FR (occurrence: FR)
  Receive Date: 20140103
  Receipt Date: 20140123
  Transmission Date: 20141002
  Serious: Yes (Other)
  Sender: FDA-Public Use
  Company Number: FR-BAXTER-2013BAX053180

PATIENT
  Age: 15 Year
  Sex: Female

DRUGS (5)
  1. KIOVIG, 100 MG/ML, SOLUTION POUR PERFUSION [Suspect]
     Indication: PEMPHIGUS
     Route: 042
     Dates: start: 2005, end: 2005
  2. KIOVIG, 100 MG/ML, SOLUTION POUR PERFUSION [Suspect]
     Indication: OFF LABEL USE
  3. DEXAMETHASONE [Concomitant]
     Indication: PEMPHIGUS
     Route: 051
     Dates: start: 2005, end: 200608
  4. DEXAMETHASONE [Concomitant]
     Route: 048
  5. MABTHERA [Concomitant]
     Indication: PEMPHIGUS
     Route: 042
     Dates: start: 200511

REACTIONS (1)
  - Drug ineffective [Not Recovered/Not Resolved]
